FAERS Safety Report 9452587 (Version 1)
Quarter: 2013Q3

REPORT INFORMATION
  Report Type: Spontaneous
  Country: US (occurrence: US)
  Receive Date: 20130812
  Receipt Date: 20130812
  Transmission Date: 20140515
  Serious: No
  Sender: FDA-Public Use
  Company Number: US-PFIZER INC-2013232032

PATIENT
  Sex: Female

DRUGS (2)
  1. NEURONTIN [Suspect]
     Dosage: HALF OR ONE TEASPOON
     Route: 048
  2. NEURONTIN [Suspect]
     Dosage: 100 MG, UNK
     Route: 048

REACTIONS (4)
  - Drug intolerance [Unknown]
  - Bradycardia [Unknown]
  - Palpitations [Unknown]
  - Dyspnoea [Unknown]
